FAERS Safety Report 22175630 (Version 1)
Quarter: 2023Q2

REPORT INFORMATION
  Report Type: Spontaneous
  Country: US (occurrence: None)
  Receive Date: 20230404
  Receipt Date: 20230404
  Transmission Date: 20230722
  Serious: Yes (Disabling)
  Sender: FDA-Public Use
  Company Number: None

PATIENT
  Age: 70 Year
  Sex: Female
  Weight: 62.55 kg

DRUGS (12)
  1. CLONAZEPAM [Suspect]
     Active Substance: CLONAZEPAM
     Indication: Restless legs syndrome
     Dosage: OTHER QUANTITY : 2 TABLET(S);?FREQUENCY : AT BEDTIME;?
     Route: 048
     Dates: start: 20210930, end: 20220830
  2. 25 mg Lamotrigine [Concomitant]
  3. 20 mg atorvastatin [Concomitant]
  4. 20 mg oxycontin [Concomitant]
  5. 3 mg Remeron [Concomitant]
  6. ASCORBIC ACID [Concomitant]
     Active Substance: ASCORBIC ACID
  7. Vitamins D [Concomitant]
  8. Vitamins E [Concomitant]
  9. VITAMIN B12 [Concomitant]
     Active Substance: CYANOCOBALAMIN
  10. CALCIUM [Concomitant]
     Active Substance: CALCIUM
  11. MAGNESIUM [Concomitant]
     Active Substance: MAGNESIUM
  12. HERBALS\TURMERIC [Concomitant]
     Active Substance: HERBALS\TURMERIC

REACTIONS (17)
  - Dizziness [None]
  - Asthenia [None]
  - Skin burning sensation [None]
  - Vision blurred [None]
  - Mental impairment [None]
  - Dyspepsia [None]
  - Weight decreased [None]
  - Tremor [None]
  - Anxiety [None]
  - Anxiety [None]
  - Nonspecific reaction [None]
  - Drug intolerance [None]
  - Withdrawal syndrome [None]
  - Nervous system disorder [None]
  - Hypotension [None]
  - Job dissatisfaction [None]
  - Injury [None]

NARRATIVE: CASE EVENT DATE: 20220405
